FAERS Safety Report 18262918 (Version 1)
Quarter: 2020Q3

REPORT INFORMATION
  Report Type: Spontaneous
  Country: US (occurrence: US)
  Receive Date: 20200914
  Receipt Date: 20200914
  Transmission Date: 20201103
  Serious: No
  Sender: FDA-Public Use
  Company Number: US-JNJFOC-20200920960

PATIENT
  Age: 50 Year

DRUGS (1)
  1. NIZORAL [Suspect]
     Active Substance: KETOCONAZOLE
     Indication: ECZEMA
     Dosage: USED IN THE SHOWER A COUPLE OF TIMES PER WEEK
     Route: 061
     Dates: start: 2013, end: 20200813

REACTIONS (3)
  - Intentional product misuse [Unknown]
  - Rash papular [Recovered/Resolved]
  - Product use in unapproved indication [Unknown]

NARRATIVE: CASE EVENT DATE: 2013
